FAERS Safety Report 11652364 (Version 1)
Quarter: 2015Q4

REPORT INFORMATION
  Report Type: Spontaneous
  Country: US (occurrence: None)
  Receive Date: 20151021
  Receipt Date: 20151021
  Transmission Date: 20160304
  Serious: Yes (Life-Threatening, Hospitalization)
  Sender: FDA-Public Use
  Company Number: None

PATIENT
  Age: 86 Year
  Sex: Female
  Weight: 54 kg

DRUGS (1)
  1. CEFOTETAN [Suspect]
     Active Substance: CEFOTETAN DISODIUM
     Indication: LARGE INTESTINE PERFORATION
     Route: 042
     Dates: start: 20150110, end: 20150110

REACTIONS (5)
  - Coombs direct test positive [None]
  - Anaemia [None]
  - Discomfort [None]
  - Back pain [None]
  - Drug specific antibody present [None]

NARRATIVE: CASE EVENT DATE: 20150123
